FAERS Safety Report 18500316 (Version 3)
Quarter: 2021Q1

REPORT INFORMATION
  Report Type: Spontaneous
  Country: JP (occurrence: JP)
  Receive Date: 20201113
  Receipt Date: 20210208
  Transmission Date: 20210419
  Serious: Yes (Life-Threatening, Other)
  Sender: FDA-Public Use
  Company Number: NVSJ2020JP011824

PATIENT
  Age: 92 Year
  Sex: Female

DRUGS (11)
  1. ENTRESTO [Suspect]
     Active Substance: SACUBITRIL\VALSARTAN
     Indication: CARDIAC FAILURE CHRONIC
     Dosage: 200 MG
     Route: 048
     Dates: start: 20201014
  2. SOLITA?T3 [Concomitant]
     Active Substance: POTASSIUM CHLORIDE\SODIUM CHLORIDE\SODIUM LACTATE
     Indication: PRODUCT USED FOR UNKNOWN INDICATION
     Dosage: 200 ML
     Route: 065
     Dates: start: 20201031
  3. ENTRESTO [Suspect]
     Active Substance: SACUBITRIL\VALSARTAN
     Indication: GENERALISED OEDEMA
     Dosage: 50 MG, BID
     Route: 048
     Dates: start: 20201019, end: 20201101
  4. TIAPRIDE [Concomitant]
     Active Substance: TIAPRIDE
     Indication: DEMENTIA
     Dosage: UNK
     Route: 065
  5. YOKUKANSAN [Concomitant]
     Active Substance: HERBALS
     Indication: DEMENTIA
     Dosage: UNK
     Route: 065
  6. LASIX [Concomitant]
     Active Substance: FUROSEMIDE
     Indication: PRODUCT USED FOR UNKNOWN INDICATION
     Dosage: UNK
     Route: 048
  7. ENTRESTO [Suspect]
     Active Substance: SACUBITRIL\VALSARTAN
     Dosage: 100 MG
     Route: 048
     Dates: start: 20201102, end: 20201112
  8. AZILVA [Concomitant]
     Active Substance: AZILSARTAN KAMEDOXOMIL
     Indication: CARDIAC FAILURE
     Dosage: 40 MG
     Route: 048
  9. SPIRONOLACTONE. [Concomitant]
     Active Substance: SPIRONOLACTONE
     Indication: PRODUCT USED FOR UNKNOWN INDICATION
     Dosage: 25 MG, BID
     Route: 048
  10. ALDACTONE A [Concomitant]
     Active Substance: SPIRONOLACTONE
     Indication: PRODUCT USED FOR UNKNOWN INDICATION
     Dosage: 25 MG, BID
     Route: 048
     Dates: start: 20201127
  11. MEMARY [Concomitant]
     Active Substance: MEMANTINE HYDROCHLORIDE
     Indication: DEMENTIA
     Dosage: UNK
     Route: 065

REACTIONS (5)
  - Pneumonia [Unknown]
  - Pyrexia [Unknown]
  - Blood creatinine increased [Unknown]
  - Urticaria [Recovered/Resolved]
  - Blood sodium increased [Unknown]

NARRATIVE: CASE EVENT DATE: 20201028
